FAERS Safety Report 9130741 (Version 2)
Quarter: 2013Q1

REPORT INFORMATION
  Report Type: Spontaneous
  Country: BR (occurrence: BR)
  Receive Date: 20130301
  Receipt Date: 20130305
  Transmission Date: 20140127
  Serious: Yes (Hospitalization)
  Sender: FDA-Public Use
  Company Number: PHHY2013BR019635

PATIENT
  Sex: Female

DRUGS (3)
  1. FORASEQ [Suspect]
     Indication: ASTHMA
     Dosage: 2 DF, QD
  2. AAS [Suspect]
  3. BUSCOPAN [Suspect]

REACTIONS (1)
  - Hypersensitivity [Not Recovered/Not Resolved]
